FAERS Safety Report 7938737-X (Version None)
Quarter: 2011Q4

REPORT INFORMATION
  Report Type: 
  Country: None (occurrence: None)
  Receive Date: 20111124
  Receipt Date: 20111118
  Transmission Date: 20120403
  Serious: No
  Sender: FDA-Public Use
  Company Number: US-BIOGENIDEC-2010BI009259

PATIENT
  Sex: Female

DRUGS (4)
  1. TYSABRI [Suspect]
     Route: 042
     Dates: start: 20061114, end: 20081202
  2. TYSABRI [Suspect]
     Route: 042
     Dates: start: 20090115
  3. TYSABRI [Suspect]
     Indication: MULTIPLE SCLEROSIS
     Route: 042
     Dates: start: 20050110, end: 20050201
  4. TYSABRI [Suspect]
     Route: 042
     Dates: start: 20051001

REACTIONS (9)
  - ARTHROPATHY [None]
  - ARTHRALGIA [None]
  - JOINT INJURY [None]
  - MENORRHAGIA [None]
  - PLANTAR FASCIITIS [None]
  - ABASIA [None]
  - ADVERSE EVENT [None]
  - PROCEDURAL PAIN [None]
  - MEMORY IMPAIRMENT [None]
